FAERS Safety Report 5176711-X (Version None)
Quarter: 2006Q4

REPORT INFORMATION
  Report Type: 
  Country: None (occurrence: None)
  Receive Date: 20061218
  Receipt Date: 20061205
  Transmission Date: 20070319
  Serious: Yes (Hospitalization, Other)
  Sender: FDA-Public Use
  Company Number: PHHO2006JP20775

PATIENT
  Age: 76 Year
  Sex: Female

DRUGS (1)
  1. DIOVAN [Suspect]
     Indication: HYPERTENSION
     Dosage: 80 MG, QD
     Route: 048
     Dates: start: 20030725, end: 20050411

REACTIONS (4)
  - ATRIOVENTRICULAR BLOCK THIRD DEGREE [None]
  - CARDIAC PACEMAKER INSERTION [None]
  - DIZZINESS [None]
  - MALAISE [None]
